FAERS Safety Report 6158868-7 (Version None)
Quarter: 2009Q2

REPORT INFORMATION
  Report Type: 
  Country: None (occurrence: None)
  Receive Date: 20090415
  Receipt Date: 20090415
  Transmission Date: 20091009
  Serious: Yes (Hospitalization)
  Sender: FDA-Public Use
  Company Number: None

PATIENT
  Sex: Female
  Weight: 92.9874 kg

DRUGS (2)
  1. TAXOTERE [Suspect]
     Indication: BREAST CANCER STAGE III
     Dosage: 100MG EVERY 21 DAYS IV DRIP
     Route: 041
     Dates: start: 20081202, end: 20090120
  2. TAXOTERE [Suspect]
     Indication: BREAST CANCER STAGE III
     Dosage: 100MG EVERY 21 DAYS IV DRIP
     Route: 041
     Dates: start: 20081223, end: 20090224

REACTIONS (4)
  - CELLULITIS [None]
  - HAEMORRHAGE [None]
  - RASH PUSTULAR [None]
  - TENDERNESS [None]
